FAERS Safety Report 7457486-8 (Version None)
Quarter: 2011Q2

REPORT INFORMATION
  Report Type: 
  Country: None (occurrence: None)
  Receive Date: 20110502
  Receipt Date: 20110502
  Transmission Date: 20111010
  Serious: No
  Sender: FDA-Public Use
  Company Number: None

PATIENT
  Age: 44 Year
  Sex: Female
  Weight: 85.9113 kg

DRUGS (1)
  1. ZOLOFT [Suspect]

REACTIONS (1)
  - DISEASE RECURRENCE [None]
